FAERS Safety Report 7620541-3 (Version None)
Quarter: 2011Q3

REPORT INFORMATION
  Report Type: 
  Country: None (occurrence: None)
  Receive Date: 20110719
  Receipt Date: 20110713
  Transmission Date: 20111222
  Serious: Yes (Hospitalization)
  Sender: FDA-Public Use
  Company Number: FR-PFIZER INC-2011157890

PATIENT
  Age: 67 Year
  Sex: Female

DRUGS (6)
  1. CONTRAST MEDIA [Suspect]
     Indication: NUCLEAR MAGNETIC RESONANCE IMAGING
     Dosage: UNK
     Route: 048
     Dates: start: 20110521
  2. ASPIRIN [Suspect]
     Indication: CEREBROVASCULAR ACCIDENT PROPHYLAXIS
     Dosage: UNK
     Route: 048
     Dates: start: 20110427
  3. SERETIDE [Concomitant]
     Dosage: UNK
     Route: 048
  4. AMLODIPINE BESYLATE AND OLMESARTAN MEDOXOMIL [Suspect]
     Indication: ESSENTIAL HYPERTENSION
     Dosage: UNK
     Route: 048
     Dates: start: 20110420, end: 20110530
  5. ATORVASTATIN CALCIUM [Suspect]
     Indication: ARTERIOSCLEROSIS
     Dosage: UNK
     Route: 048
     Dates: start: 20110420
  6. NEXIUM [Suspect]
     Indication: GASTRIC DISORDER
     Dosage: UNK
     Route: 048
     Dates: start: 20110427, end: 20110530

REACTIONS (2)
  - MOVEMENT DISORDER [None]
  - RASH [None]
